FAERS Safety Report 23671671 (Version 1)
Quarter: 2024Q1

REPORT INFORMATION
  Report Type: Spontaneous
  Country: US (occurrence: US)
  Receive Date: 20240326
  Receipt Date: 20240326
  Transmission Date: 20240410
  Serious: Yes (Other)
  Sender: FDA-Public Use
  Company Number: US-STRIDES ARCOLAB LIMITED-2024SP000589

PATIENT
  Age: 34 Year
  Sex: Female

DRUGS (8)
  1. TRIAMCINOLONE ACETONIDE [Suspect]
     Active Substance: TRIAMCINOLONE ACETONIDE
     Indication: Dermatitis
     Dosage: UNK, (CREAM)
     Route: 061
  2. TRIAMCINOLONE ACETONIDE [Suspect]
     Active Substance: TRIAMCINOLONE ACETONIDE
     Indication: Chondropathy
  3. NEOMYCIN [Suspect]
     Active Substance: NEOMYCIN
     Indication: Dermatitis
     Dosage: UNK
     Route: 065
  4. NEOMYCIN [Suspect]
     Active Substance: NEOMYCIN
     Indication: Chondropathy
  5. POLYMYXIN B SULFATE [Suspect]
     Active Substance: POLYMYXIN B SULFATE
     Indication: Dermatitis
     Dosage: UNK
     Route: 065
  6. POLYMYXIN B SULFATE [Suspect]
     Active Substance: POLYMYXIN B SULFATE
     Indication: Chondropathy
  7. HYDROCORTISONE [Suspect]
     Active Substance: HYDROCORTISONE
     Indication: Dermatitis
     Dosage: UNK, OTIC SOLUTION
     Route: 001
  8. HYDROCORTISONE [Suspect]
     Active Substance: HYDROCORTISONE
     Indication: Chondropathy

REACTIONS (3)
  - Therapy non-responder [Unknown]
  - Condition aggravated [Unknown]
  - Off label use [Unknown]
